FAERS Safety Report 14359998 (Version 4)
Quarter: 2019Q1

REPORT INFORMATION
  Report Type: Report from Study
  Country: None (occurrence: US)
  Receive Date: 20180105
  Receipt Date: 20190104
  Transmission Date: 20190417
  Serious: Yes (Hospitalization, Other)
  Sender: FDA-Public Use
  Company Number: US-ABBVIE-18K-163-2213447-00

PATIENT
  Age: 46 Year
  Sex: Female
  Weight: 64.47 kg

DRUGS (3)
  1. HUMIRA [Suspect]
     Active Substance: ADALIMUMAB
     Indication: RHEUMATOID ARTHRITIS
     Route: 058
     Dates: start: 201809
  2. HUMIRA [Suspect]
     Active Substance: ADALIMUMAB
     Indication: CROHN^S DISEASE
     Route: 058
     Dates: start: 201106, end: 201809
  3. CHOLESTYRAMINE. [Concomitant]
     Active Substance: CHOLESTYRAMINE
     Indication: DIARRHOEA

REACTIONS (8)
  - Blood pressure increased [Not Recovered/Not Resolved]
  - Anal fistula [Recovered/Resolved]
  - Injection site bruising [Unknown]
  - Anal haemorrhage [Recovering/Resolving]
  - Inflammation [Recovering/Resolving]
  - Anal injury [Recovered/Resolved]
  - Gastrointestinal motility disorder [Unknown]
  - Drug level decreased [Recovered/Resolved]

NARRATIVE: CASE EVENT DATE: 2017
